FAERS Safety Report 7681351-4 (Version None)
Quarter: 2011Q3

REPORT INFORMATION
  Report Type: 
  Country: None (occurrence: None)
  Receive Date: 20110812
  Receipt Date: 20110803
  Transmission Date: 20111222
  Serious: Yes (Hospitalization)
  Sender: FDA-Public Use
  Company Number: DK-JNJFOC-20110802783

PATIENT
  Sex: Female
  Weight: 70 kg

DRUGS (1)
  1. SIMPONI [Suspect]
     Indication: JUVENILE ARTHRITIS
     Route: 058
     Dates: end: 20110715

REACTIONS (4)
  - HYPERTENSION [None]
  - TACHYCARDIA [None]
  - OFF LABEL USE [None]
  - FEELING HOT [None]
